FAERS Safety Report 26195237 (Version 1)
Quarter: 2025Q4

REPORT INFORMATION
  Report Type: Spontaneous
  Country: CN (occurrence: CN)
  Receive Date: 20251224
  Receipt Date: 20251224
  Transmission Date: 20260117
  Serious: Yes (Other)
  Sender: ALKEM
  Company Number: CN-ALKEM LABORATORIES LIMITED-CN-ALKEM-2025-13941

PATIENT
  Age: 53 Year
  Sex: Male

DRUGS (5)
  1. AMLODIPINE BESYLATE [Interacting]
     Active Substance: AMLODIPINE BESYLATE
     Indication: Product used for unknown indication
     Dosage: 5 MILLIGRAM, QD
     Route: 048
  2. OXALIPLATIN [Interacting]
     Active Substance: OXALIPLATIN
     Indication: Rectal cancer
     Dosage: 150 MILLIGRAM (CYCLE)
     Route: 065
  3. LEUCOVORIN CALCIUM [Concomitant]
     Active Substance: LEUCOVORIN CALCIUM
     Indication: Rectal cancer
     Dosage: 600 MILLIGRAM
     Route: 065
  4. FLUOROURACIL [Concomitant]
     Active Substance: FLUOROURACIL
     Indication: Rectal cancer
     Dosage: 0.6 GRAM (CYCLE)
     Route: 042
  5. FLUOROURACIL [Concomitant]
     Active Substance: FLUOROURACIL
     Dosage: 4.2 GRAM (PUMPING FOR 46 HOURS)
     Route: 065

REACTIONS (2)
  - Brugada syndrome [Recovering/Resolving]
  - Drug interaction [Unknown]
